FAERS Safety Report 7672348-9 (Version None)
Quarter: 2011Q3

REPORT INFORMATION
  Report Type: 
  Country: None (occurrence: None)
  Receive Date: 20110804
  Receipt Date: 20110720
  Transmission Date: 20111222
  Serious: Yes (Hospitalization, Other)
  Sender: FDA-Public Use
  Company Number: 1000017060

PATIENT
  Age: 68 Year
  Sex: Female
  Weight: 65 kg

DRUGS (6)
  1. SPIRIVA (TIOTROPIUM BROMIDE) (TIOTROPIUM BROMIDE) [Concomitant]
  2. AMITRIPTULINE (AMITRIPTYLINE) [Concomitant]
  3. ROFLUMILAST (ROFLUMILAST) (TABLETS) [Suspect]
     Indication: CHRONIC OBSTRUCTIVE PULMONARY DISEASE
     Dosage: 500 MCG (500 MCG, 1 IN 1 D), ORAL
     Route: 048
     Dates: start: 20100923, end: 20101008
  4. BEROTEC [Concomitant]
  5. AMLODIPINE [Concomitant]
  6. FOSTAIR (BECLOMETHASONE, FENOTEROL) (BECLOMETHASONE, FENOTEROL) [Concomitant]

REACTIONS (15)
  - DISORIENTATION [None]
  - DEPRESSION [None]
  - HYPOKALAEMIA [None]
  - ANXIETY [None]
  - PANIC ATTACK [None]
  - NOROVIRUS TEST POSITIVE [None]
  - VENTRICULAR EXTRASYSTOLES [None]
  - ATRIAL FIBRILLATION [None]
  - MEMORY IMPAIRMENT [None]
  - EMPHYSEMA [None]
  - DYSPNOEA [None]
  - CONDITION AGGRAVATED [None]
  - TREMOR [None]
  - GAIT DISTURBANCE [None]
  - TACHYARRHYTHMIA [None]
